FAERS Safety Report 15615491 (Version 2)
Quarter: 2019Q1

REPORT INFORMATION
  Report Type: Report from Study
  Country: US (occurrence: US)
  Receive Date: 20181114
  Receipt Date: 20190115
  Transmission Date: 20190417
  Serious: Yes (Hospitalization)
  Sender: FDA-Public Use
  Company Number: US-BIOGEN-2018BI00656268

PATIENT
  Sex: Female

DRUGS (1)
  1. PLEGRIDY [Suspect]
     Active Substance: PEGINTERFERON BETA-1A
     Indication: MULTIPLE SCLEROSIS
     Route: 058
     Dates: start: 20180703

REACTIONS (1)
  - Cystitis interstitial [Unknown]
